FAERS Safety Report 12957268 (Version 4)
Quarter: 2017Q1

REPORT INFORMATION
  Report Type: Report from Study
  Country: US (occurrence: US)
  Receive Date: 20161118
  Receipt Date: 20170207
  Transmission Date: 20170428
  Serious: Yes (Hospitalization, Other)
  Sender: FDA-Public Use
  Company Number: US-EISAI MEDICAL RESEARCH-EC-2016-019349

PATIENT
  Age: 65 Year
  Sex: Male
  Weight: 193 kg

DRUGS (9)
  1. LENVIMA [Suspect]
     Active Substance: LENVATINIB
     Route: 048
     Dates: start: 201611
  2. AFINITOR [Concomitant]
     Active Substance: EVEROLIMUS
  3. POTASSIUM CHLORIDE. [Concomitant]
     Active Substance: POTASSIUM CHLORIDE
  4. MAG OXIDE [Concomitant]
     Active Substance: MAGNESIUM OXIDE
  5. CARVEDILOL. [Concomitant]
     Active Substance: CARVEDILOL
  6. ALLOPURINOL. [Concomitant]
     Active Substance: ALLOPURINOL
  7. LASIX [Concomitant]
     Active Substance: FUROSEMIDE
  8. LENVIMA [Suspect]
     Active Substance: LENVATINIB
     Indication: RENAL CELL CARCINOMA
     Route: 048
     Dates: start: 20160801, end: 20160830
  9. LENVIMA [Suspect]
     Active Substance: LENVATINIB
     Route: 048
     Dates: start: 20160916, end: 201611

REACTIONS (9)
  - Blood calcium decreased [Recovered/Resolved]
  - Diarrhoea [Recovered/Resolved]
  - Pain in extremity [Recovered/Resolved]
  - Hypotension [Recovered/Resolved with Sequelae]
  - Weight bearing difficulty [Recovered/Resolved]
  - Thrombosis [Recovered/Resolved]
  - Brain neoplasm [Not Recovered/Not Resolved]
  - Oedema peripheral [Recovered/Resolved]
  - Hypertension [Recovered/Resolved]

NARRATIVE: CASE EVENT DATE: 2016
